FAERS Safety Report 23935167 (Version 1)
Quarter: 2024Q2

REPORT INFORMATION
  Report Type: Spontaneous
  Country: EG (occurrence: EG)
  Receive Date: 20240604
  Receipt Date: 20240604
  Transmission Date: 20240716
  Serious: Yes (Hospitalization, Disabling, Other)
  Sender: FDA-Public Use
  Company Number: EG-NOVOPROD-1229211

PATIENT
  Sex: Male

DRUGS (1)
  1. ACTRAPID [Suspect]
     Active Substance: INSULIN HUMAN
     Indication: Diabetes mellitus
     Dosage: 60 IU, QD (30U AT MORNING -30U AT NIGHT)
     Route: 058

REACTIONS (3)
  - Arterial occlusive disease [Not Recovered/Not Resolved]
  - Joint injury [Unknown]
  - Hypertension [Unknown]
